FAERS Safety Report 9037879 (Version 2)
Quarter: 2013Q2

REPORT INFORMATION
  Report Type: Spontaneous
  Country: US (occurrence: US)
  Receive Date: 20130129
  Receipt Date: 20130401
  Transmission Date: 20140414
  Serious: Yes (Other)
  Sender: FDA-Public Use
  Company Number: US-BAYER-2013-010096

PATIENT
  Age: 22 Year
  Sex: Female

DRUGS (6)
  1. MIRENA [Suspect]
     Indication: CONTRACEPTION
     Dosage: 20 MCG/24HR, CONT
     Route: 015
     Dates: start: 20130117, end: 20130117
  2. MIRENA [Suspect]
     Indication: CONTRACEPTION
     Dosage: UNK
     Dates: start: 20130131
  3. LEVAQUIN [Concomitant]
     Dosage: 500 MG, UNK
  4. NORCO [Concomitant]
     Dosage: 25 MG, UNK
  5. MOTRIN [Concomitant]
     Dosage: 800 MG, UNK
  6. GENERAL ANESTHESIA [Concomitant]

REACTIONS (3)
  - Device dislocation [Recovered/Resolved]
  - Complication of device insertion [Recovered/Resolved]
  - Procedural haemorrhage [Recovered/Resolved]
